FAERS Safety Report 7222054-X (Version None)
Quarter: 2011Q1

REPORT INFORMATION
  Report Type: 
  Country: None (occurrence: None)
  Receive Date: 20110103
  Receipt Date: 20101215
  Transmission Date: 20110831
  Serious: Yes (Hospitalization)
  Sender: FDA-Public Use
  Company Number: 021494

PATIENT
  Sex: Male
  Weight: 46 kg

DRUGS (8)
  1. PEPCID [Concomitant]
  2. FLAGYL [Concomitant]
  3. CYMBALTA [Concomitant]
  4. IBUPROFEN [Concomitant]
  5. HEPARIN [Concomitant]
  6. CIROFLOXACIN [Concomitant]
  7. CERTOLIZUMAB PEGOL [Suspect]
     Indication: CROHN'S DISEASE
     Dosage: 400 MG 1X/2 WEEKS SUBCUTANEOUS
     Route: 058
     Dates: start: 20100122
  8. PREDNISONE [Concomitant]

REACTIONS (31)
  - ILEOCOLECTOMY [None]
  - PROCEDURAL PAIN [None]
  - NAUSEA [None]
  - ENTEROCOLONIC FISTULA [None]
  - STAPHYLOCOCCUS TEST POSITIVE [None]
  - BLOOD ALBUMIN DECREASED [None]
  - PLEURAL EFFUSION [None]
  - ATELECTASIS [None]
  - ACROCHORDON [None]
  - VOMITING [None]
  - URINE OUTPUT DECREASED [None]
  - ABDOMINAL DISTENSION [None]
  - HAEMOGLOBIN DECREASED [None]
  - WHITE BLOOD CELL COUNT INCREASED [None]
  - STREPTOCOCCUS TEST POSITIVE [None]
  - HAEMORRHAGIC ASCITES [None]
  - RED BLOOD CELL COUNT DECREASED [None]
  - ILEOSTOMY [None]
  - EXCORIATION [None]
  - ANASTOMOTIC LEAK [None]
  - LOCALISED INTRAABDOMINAL FLUID COLLECTION [None]
  - PELVIC FLUID COLLECTION [None]
  - ABDOMINAL ABSCESS [None]
  - FAECAL VOLUME INCREASED [None]
  - CLOSTRIDIAL INFECTION [None]
  - OEDEMA PERIPHERAL [None]
  - TACHYCARDIA [None]
  - ENTEROCOCCUS TEST POSITIVE [None]
  - BACTERIAL TEST POSITIVE [None]
  - HAEMATOCRIT DECREASED [None]
  - PYELONEPHRITIS [None]
